FAERS Safety Report 5346291-4 (Version None)
Quarter: 2007Q2

REPORT INFORMATION
  Report Type: 
  Country: None (occurrence: None)
  Receive Date: 20070430
  Receipt Date: 20070125
  Transmission Date: 20071010
  Serious: No
  Sender: FDA-Public Use
  Company Number: 260352

PATIENT
  Age: 66 Year
  Sex: Male
  Weight: 100.7 kg

DRUGS (7)
  1. LEVEMIR [Suspect]
     Indication: INSULIN-REQUIRING TYPE II DIABETES MELLITUS
     Dosage: SEE IMAGE
     Route: 058
     Dates: start: 20070101, end: 20070204
  2. LEVEMIR [Suspect]
     Indication: INSULIN-REQUIRING TYPE II DIABETES MELLITUS
     Dosage: SEE IMAGE
     Route: 058
     Dates: start: 20070205
  3. GLUCOPHAGE XR (METFORMIN HYDROCHLORIDE) [Concomitant]
  4. AMARYL [Concomitant]
  5. LANTUS [Concomitant]
  6. LIPITOR [Concomitant]
  7. MULTIVITAMIN /00831701/ (VITAMINS NOS) [Concomitant]

REACTIONS (3)
  - BLOOD GLUCOSE INCREASED [None]
  - BLOOD POTASSIUM INCREASED [None]
  - BLOOD UREA INCREASED [None]
